FAERS Safety Report 7891693-5 (Version None)
Quarter: 2011Q4

REPORT INFORMATION
  Report Type: 
  Country: None (occurrence: None)
  Receive Date: 20111103
  Receipt Date: 20110809
  Transmission Date: 20120403
  Serious: Yes (Hospitalization)
  Sender: FDA-Public Use
  Company Number: US-AMGEN-USASP2011040453

PATIENT
  Age: 52 Year
  Sex: Female

DRUGS (2)
  1. ENBREL [Suspect]
     Dosage: UNK
  2. ENBREL [Suspect]
     Indication: RHEUMATOID ARTHRITIS
     Dosage: 25 MG, 2 TIMES/WK
     Dates: start: 19991001, end: 20110701

REACTIONS (5)
  - STAPHYLOCOCCAL BACTERAEMIA [None]
  - INJECTION SITE HAEMATOMA [None]
  - RASH GENERALISED [None]
  - INJECTION SITE NODULE [None]
  - CONTUSION [None]
